FAERS Safety Report 5382441-1 (Version None)
Quarter: 2007Q2

REPORT INFORMATION
  Report Type: 
  Country: None (occurrence: None)
  Receive Date: 20070629
  Receipt Date: 20061010
  Transmission Date: 20071010
  Serious: Yes (Other)
  Sender: FDA-Public Use
  Company Number: 2006124528

PATIENT
  Age: 61 Year
  Sex: Female

DRUGS (3)
  1. ZOLOFT [Suspect]
     Indication: ANXIETY
     Dates: start: 20060901
  2. ALL OTHER THERAPEUTICS PRODUCTS (ALL OTHER THERAPEUTIC PRODUCTS) [Suspect]
  3. ANTIDEPRESSANTS (ANTIDEPRESSANTS) [Concomitant]

REACTIONS (4)
  - CONFUSIONAL STATE [None]
  - CONVULSION [None]
  - DYSGEUSIA [None]
  - NAUSEA [None]
